FAERS Safety Report 17201302 (Version 2)
Quarter: 2019Q4

REPORT INFORMATION
  Report Type: Spontaneous
  Country: JP (occurrence: JP)
  Receive Date: 20191226
  Receipt Date: 20191231
  Transmission Date: 20200122
  Serious: Yes (Hospitalization, Other)
  Sender: FDA-Public Use
  Company Number: JP-SA-2019SA340571

PATIENT
  Sex: Female

DRUGS (9)
  1. DUPIXENT [Suspect]
     Active Substance: DUPILUMAB
     Indication: ASTHMA
     Dosage: 300 MG, 1X
     Route: 058
     Dates: start: 20191125, end: 20191125
  2. PREDNISOLONE. [Concomitant]
     Active Substance: PREDNISOLONE
     Indication: ASTHMA
     Dosage: DAILY DOSE: 5 MG (FOR 14 DAYS)
     Route: 048
  3. THEO-DUR [Concomitant]
     Active Substance: THEOPHYLLINE ANHYDROUS
     Indication: ASTHMA
     Dosage: DAILY DOSE: 100 MG (FOR 14 DAYS)
     Route: 048
  4. FEXOFENADINE HYDROCHLORIDE. [Concomitant]
     Active Substance: FEXOFENADINE HYDROCHLORIDE
     Indication: ASTHMA
     Dosage: DAILY DOSE: 1 TABLET X 2 (FOR 14 DAYS)
     Route: 048
  5. KIPRES [Concomitant]
     Active Substance: MONTELUKAST SODIUM
     Indication: ASTHMA
     Dosage: DAILY DOSE: 10 MG (FOR 14 DAYS)
     Route: 048
  6. MEVALOTIN [Concomitant]
     Active Substance: PRAVASTATIN SODIUM
     Indication: DYSLIPIDAEMIA
     Dosage: DAILY DOSE: 10 MG (FOR 14 DAYS)
     Route: 048
  7. SYMBICORT [Concomitant]
     Active Substance: BUDESONIDE\FORMOTEROL FUMARATE DIHYDRATE
     Indication: ASTHMA
     Dosage: DAILY DOSE: 2 INHALATIONS X 2
     Route: 055
  8. NORVASC [Concomitant]
     Active Substance: AMLODIPINE BESYLATE
     Indication: HYPERTENSION
     Dosage: DAILY DOSE: 5 MG (FOR 14 DAYS)
     Route: 048
  9. ACINON [NIZATIDINE] [Concomitant]
     Indication: GASTRIC ULCER
     Dosage: DAILY DOSE: 150 MG X 2 (FOR 14 DAYS)
     Route: 048

REACTIONS (2)
  - Escherichia urinary tract infection [Recovered/Resolved]
  - Bronchitis [Recovered/Resolved]

NARRATIVE: CASE EVENT DATE: 20191201
